FAERS Safety Report 9382972 (Version 2)
Quarter: 2013Q3

REPORT INFORMATION
  Report Type: Spontaneous
  Country: FR (occurrence: FR)
  Receive Date: 20130703
  Receipt Date: 20130724
  Transmission Date: 20140515
  Serious: Yes (Life-Threatening, Hospitalization)
  Sender: FDA-Public Use
  Company Number: FR-GILEAD-2013-0078254

PATIENT
  Age: 65 Year
  Sex: Female

DRUGS (9)
  1. TRUVADA [Suspect]
     Indication: HIV INFECTION
     Dosage: 445 MG, UNK
     Route: 048
     Dates: start: 20130430, end: 20130521
  2. ISENTRESS [Suspect]
     Indication: HIV INFECTION
     Dosage: 400 MG, UNK
     Route: 048
     Dates: start: 20130430, end: 20130521
  3. AUGMENTIN /00756801/ [Suspect]
     Indication: SUPERINFECTION
     Dosage: UNK
     Route: 042
     Dates: start: 20130514, end: 20130518
  4. CEFTRIAXONE PANPHARMA [Suspect]
     Indication: PYREXIA
     Dosage: UNK
     Route: 042
     Dates: start: 20130518, end: 20130518
  5. TIBERAL [Suspect]
     Indication: CHOLECYSTITIS
     Dosage: UNK
     Route: 042
     Dates: start: 20130508, end: 20130511
  6. COUMADINE [Concomitant]
     Indication: ANTICOAGULANT THERAPY
     Dosage: UNK
     Route: 048
     Dates: start: 20130506
  7. AUGMENTIN                          /00756801/ [Concomitant]
     Indication: SUPERINFECTION
     Dosage: UNK
     Dates: start: 20130424, end: 20130430
  8. AUGMENTIN                          /00756801/ [Concomitant]
     Dosage: UNK
     Dates: start: 20130507
  9. CEFTRIAXONE PANPHARMA [Concomitant]
     Indication: CHOLECYSTITIS
     Dosage: UNK
     Dates: end: 20130514

REACTIONS (1)
  - Toxic skin eruption [Recovered/Resolved]
